FAERS Safety Report 6546014-7 (Version None)
Quarter: 2010Q1

REPORT INFORMATION
  Report Type: 
  Country: None (occurrence: None)
  Receive Date: 20100121
  Receipt Date: 20100121
  Transmission Date: 20100710
  Serious: Yes (Death)
  Sender: FDA-Public Use
  Company Number: None

PATIENT
  Age: 75 Year
  Sex: Male

DRUGS (1)
  1. BYETTA [Suspect]
     Indication: DIABETES MELLITUS
     Dosage: INJECT 10MCG UNDER THE SKIN TWICE A DAY
     Route: 058

REACTIONS (3)
  - CARDIAC FAILURE [None]
  - GALLBLADDER DISORDER [None]
  - PANCREATITIS [None]
